FAERS Safety Report 4683908-1 (Version None)
Quarter: 2005Q2

REPORT INFORMATION
  Report Type: 
  Country: None (occurrence: None)
  Receive Date: 20050607
  Receipt Date: 20050527
  Transmission Date: 20051028
  Serious: Yes (Life-Threatening)
  Sender: FDA-Public Use
  Company Number: FR-ROCHE-405950

PATIENT
  Age: 50 Year
  Sex: Male
  Weight: 69 kg

DRUGS (4)
  1. INVIRASE [Suspect]
     Route: 048
     Dates: start: 20020515, end: 20050504
  2. NORVIR [Suspect]
     Dosage: DOSAGE REGIMEN: 2 DOSES EVERY DAY
     Route: 048
     Dates: start: 20020515, end: 20050504
  3. ZERIT [Suspect]
     Dosage: DOSAGE REGIMEN: 2 DOSES EVERY DAY
     Route: 048
     Dates: start: 20020515, end: 20050504
  4. EPIVIR [Suspect]
     Dosage: DOSAGE REGIMEN: 2 DOSES EVERY DAY
     Route: 048
     Dates: start: 20020515, end: 20050504

REACTIONS (2)
  - HYPERCHOLESTEROLAEMIA [None]
  - MYOCARDIAL INFARCTION [None]
